FAERS Safety Report 26205222 (Version 1)
Quarter: 2025Q4

REPORT INFORMATION
  Report Type: Report from Study
  Country: EU (occurrence: EU)
  Receive Date: 20251228
  Receipt Date: 20251228
  Transmission Date: 20260117
  Serious: Yes (Other)
  Sender: IPSEN BIOPHARMACEUTICALS, INC.
  Company Number: EU-SERVIER-S25018171

PATIENT
  Sex: Female

DRUGS (1)
  1. ONIVYDE [Suspect]
     Active Substance: IRINOTECAN HYDROCHLORIDE
     Indication: HER2 negative breast cancer
     Dosage: 60 MG/M2 (SALT-BASE) OR 50  MG/M2 (FREE-BASE) EVERY 14 DAYS
     Route: 065

REACTIONS (6)
  - Nervous system disorder [Unknown]
  - Infection [Unknown]
  - Pulmonary embolism [Unknown]
  - Fatigue [Unknown]
  - Headache [Unknown]
  - Diarrhoea [Unknown]
